FAERS Safety Report 6149836-X (Version None)
Quarter: 2009Q2

REPORT INFORMATION
  Report Type: 
  Country: None (occurrence: None)
  Receive Date: 20090409
  Receipt Date: 20090402
  Transmission Date: 20091009
  Serious: Yes (Hospitalization)
  Sender: FDA-Public Use
  Company Number: FR-NOVOPROD-285931

PATIENT
  Age: 54 Year
  Sex: Female
  Weight: 65 kg

DRUGS (11)
  1. NORDITROPIN [Suspect]
     Indication: GROWTH HORMONE DEFICIENCY
     Dosage: .6 MG, QD
     Route: 058
     Dates: start: 20070101
  2. NORDITROPIN [Suspect]
  3. LIPANTHYL [Concomitant]
     Dosage: 160 MG, QD
     Dates: start: 20020401
  4. TEGRETOL [Concomitant]
     Dosage: 600 MG, QD
     Dates: start: 20060123, end: 20070801
  5. HYDROCORTISONE [Concomitant]
     Dosage: 30 MG, QD
     Dates: start: 19760101, end: 20061113
  6. HYDROCORTISONE [Concomitant]
     Dosage: 20 MG, QD
     Dates: start: 20061114
  7. LEVOTHYROXINE SODIUM [Concomitant]
     Dosage: 125 UG, QD
     Dates: start: 20060123
  8. MINIRIN [Concomitant]
     Dosage: .6 MG, QD
     Dates: start: 20070628, end: 20070101
  9. MINIRIN [Concomitant]
     Dosage: .8 MG, QD
     Dates: start: 20070101, end: 20071106
  10. MINIRIN [Concomitant]
     Dosage: 1.3 MG, QD
     Dates: start: 20071107
  11. LUTERAN [Concomitant]
     Dates: start: 20070901

REACTIONS (1)
  - OVARIAN CYST [None]
